FAERS Safety Report 7864652-6 (Version None)
Quarter: 2011Q4

REPORT INFORMATION
  Report Type: 
  Country: None (occurrence: None)
  Receive Date: 20111028
  Receipt Date: 20111025
  Transmission Date: 20120403
  Serious: Yes (Death)
  Sender: FDA-Public Use
  Company Number: US-SANOFI-AVENTIS-2011SA070396

PATIENT

DRUGS (1)
  1. LOVENOX [Suspect]
     Route: 065

REACTIONS (1)
  - DEATH [None]
